FAERS Safety Report 20946567 (Version 1)
Quarter: 2022Q2

REPORT INFORMATION
  Report Type: Spontaneous
  Country: US (occurrence: None)
  Receive Date: 20220610
  Receipt Date: 20220610
  Transmission Date: 20220721
  Serious: No
  Sender: FDA-Public Use
  Company Number: None

PATIENT
  Age: 52 Year
  Sex: Female
  Weight: 96.8 kg

DRUGS (10)
  1. MEKINIST [Suspect]
     Active Substance: TRAMETINIB DIMETHYL SULFOXIDE
     Indication: Neoplasm malignant
     Dosage: 2MG DAILY ORAL
     Route: 048
     Dates: start: 202202, end: 20220606
  2. NORCO [Concomitant]
     Active Substance: ACETAMINOPHEN\HYDROCODONE BITARTRATE
  3. METOPROLOL [Concomitant]
     Active Substance: METOPROLOL
  4. Triple Omega [Concomitant]
  5. PROCHLORPERAZINE [Concomitant]
     Active Substance: PROCHLORPERAZINE
  6. LOVENOX [Concomitant]
     Active Substance: ENOXAPARIN SODIUM
  7. Mylanta Maximum [Concomitant]
  8. Alive Womens [Concomitant]
  9. LISINOPRIL [Concomitant]
     Active Substance: LISINOPRIL
  10. CLINDAMYCIN [Concomitant]
     Active Substance: CLINDAMYCIN

REACTIONS (5)
  - Disease progression [None]
  - Rash pustular [None]
  - Diarrhoea [None]
  - Swelling [None]
  - Limb injury [None]
